FAERS Safety Report 16788985 (Version 10)
Quarter: 2023Q4

REPORT INFORMATION
  Report Type: Report from Study
  Country: JP (occurrence: JP)
  Receive Date: 20190910
  Receipt Date: 20231229
  Transmission Date: 20240110
  Serious: Yes (Hospitalization, Other)
  Sender: FDA-Public Use
  Company Number: JP-GLAXOSMITHKLINE-JP2017JPN098293

PATIENT

DRUGS (75)
  1. DOLUTEGRAVIR [Suspect]
     Active Substance: DOLUTEGRAVIR
     Indication: HIV infection
     Dosage: 50 MG, 1D
     Route: 048
     Dates: start: 20160106, end: 20190716
  2. EPZICOM [Suspect]
     Active Substance: ABACAVIR SULFATE\LAMIVUDINE
     Indication: HIV infection
     Dosage: 1 DF, 1D
     Route: 048
     Dates: start: 20151211, end: 20190716
  3. AZITHROMYCIN DIHYDRATE [Suspect]
     Active Substance: AZITHROMYCIN DIHYDRATE
     Indication: Opportunistic infection prophylaxis
     Dosage: 1200 MG, QD
     Route: 065
     Dates: start: 20151209, end: 20151213
  4. AZITHROMYCIN DIHYDRATE [Suspect]
     Active Substance: AZITHROMYCIN DIHYDRATE
     Indication: Mycobacterium avium complex infection
     Dosage: 1200 MG, QD
     Route: 065
     Dates: start: 20151224, end: 20151224
  5. AZITHROMYCIN DIHYDRATE [Suspect]
     Active Substance: AZITHROMYCIN DIHYDRATE
     Dosage: 600 MG, QD
     Route: 065
     Dates: start: 20160119, end: 20200823
  6. MYCOBUTIN [Suspect]
     Active Substance: RIFABUTIN
     Indication: Mycobacterium avium complex infection
     Dosage: 300 MG, QD
     Route: 065
     Dates: start: 20160119, end: 20190625
  7. ETHAMBUTOL HYDROCHLORIDE [Suspect]
     Active Substance: ETHAMBUTOL HYDROCHLORIDE
     Indication: Mycobacterium avium complex infection
     Dosage: 1000 MG, QD
     Route: 065
     Dates: start: 20160119, end: 20190625
  8. ISENTRESS [Concomitant]
     Active Substance: RALTEGRAVIR POTASSIUM
     Indication: HIV infection
     Dosage: 800 MG, 1D
     Dates: start: 20151211, end: 20160105
  9. PENTAMIDINE [Concomitant]
     Active Substance: PENTAMIDINE
     Indication: Prophylaxis
     Dosage: 0.33 BOTTLE, ONCE IN 2 WEEKS
     Dates: start: 20151224, end: 20160331
  10. PENTAMIDINE [Concomitant]
     Active Substance: PENTAMIDINE
     Dosage: 0.33 BOTTLE, ONCE A MONTH
     Dates: start: 20160401, end: 20160511
  11. SULFAMETHOXAZOLE\TRIMETHOPRIM [Concomitant]
     Active Substance: SULFAMETHOXAZOLE\TRIMETHOPRIM
     Indication: Prophylaxis
     Dosage: 1 DF, QD
     Dates: start: 20160511, end: 20201007
  12. SULFAMETHOXAZOLE\TRIMETHOPRIM [Concomitant]
     Active Substance: SULFAMETHOXAZOLE\TRIMETHOPRIM
     Dosage: UNK
     Dates: start: 20220621
  13. FLUCONAZOLE [Concomitant]
     Active Substance: FLUCONAZOLE
     Indication: Oropharyngeal candidiasis
     Dosage: 200 MG, QD
     Dates: start: 20160119, end: 20160125
  14. FLUCONAZOLE [Concomitant]
     Active Substance: FLUCONAZOLE
     Indication: Oesophageal candidiasis
     Dosage: UNK
     Dates: start: 20220425, end: 20221012
  15. FLUCONAZOLE [Concomitant]
     Active Substance: FLUCONAZOLE
     Indication: Prophylaxis
  16. LAC-B GRANULAR POWDER N [Concomitant]
     Indication: Prophylaxis
     Dosage: UNK
     Dates: start: 20180110, end: 20180515
  17. LAC-B GRANULAR POWDER N [Concomitant]
     Dosage: UNK
     Dates: start: 20190424, end: 20191003
  18. LAC-B GRANULAR POWDER N [Concomitant]
     Dosage: UNK
     Dates: start: 20220411
  19. LOPERAMIDE HYDROCHLORIDE [Concomitant]
     Active Substance: LOPERAMIDE HYDROCHLORIDE
     Indication: Prophylaxis
     Dosage: UNK
     Dates: start: 20170630, end: 20190716
  20. LOPERAMIDE HYDROCHLORIDE [Concomitant]
     Active Substance: LOPERAMIDE HYDROCHLORIDE
     Indication: Diarrhoea
     Dosage: UNK
     Dates: start: 20220505
  21. INFLUENZA VIRUS VACCINE [Concomitant]
     Active Substance: INFLUENZA VIRUS VACCINE
     Indication: Prophylaxis
     Dosage: UNK
     Dates: start: 20181128, end: 20181128
  22. INFLUENZA VIRUS VACCINE [Concomitant]
     Active Substance: INFLUENZA VIRUS VACCINE
     Dosage: UNK
     Dates: start: 20191106, end: 20191106
  23. INFLUENZA VIRUS VACCINE [Concomitant]
     Active Substance: INFLUENZA VIRUS VACCINE
     Dosage: UNK
     Dates: start: 20201111, end: 20201111
  24. INFLUENZA VIRUS VACCINE [Concomitant]
     Active Substance: INFLUENZA VIRUS VACCINE
     Dosage: 0.5 ML
     Dates: start: 20221109, end: 20221109
  25. LOXOPROFEN [Concomitant]
     Active Substance: LOXOPROFEN
     Indication: Pain prophylaxis
     Dosage: UNK
     Dates: start: 20180919, end: 20190128
  26. LOXOPROFEN [Concomitant]
     Active Substance: LOXOPROFEN
     Dosage: UNK
     Dates: start: 20191204, end: 20210309
  27. REBAMIPIDE [Concomitant]
     Active Substance: REBAMIPIDE
     Indication: Pain prophylaxis
     Dosage: UNK
     Dates: start: 20181203, end: 20181207
  28. REBAMIPIDE [Concomitant]
     Active Substance: REBAMIPIDE
     Dosage: UNK
     Dates: start: 20201028, end: 20210309
  29. CEFAZOLIN SODIUM [Concomitant]
     Active Substance: CEFAZOLIN SODIUM
     Indication: Infection prophylaxis
     Dosage: UNK
     Dates: start: 20181203, end: 20181203
  30. CAMPHOR\MENTHOL\METHYL SALICYLATE [Concomitant]
     Active Substance: CAMPHOR\MENTHOL\METHYL SALICYLATE
     Indication: Pain prophylaxis
     Dosage: UNK
     Dates: start: 20180919, end: 20190128
  31. CAMPHOR\MENTHOL\METHYL SALICYLATE [Concomitant]
     Active Substance: CAMPHOR\MENTHOL\METHYL SALICYLATE
     Dosage: UNK
     Dates: start: 20191225, end: 20200201
  32. CAMPHOR\MENTHOL\METHYL SALICYLATE [Concomitant]
     Active Substance: CAMPHOR\MENTHOL\METHYL SALICYLATE
     Dosage: UNK
     Dates: start: 20201007
  33. BIKTARVY [Concomitant]
     Active Substance: BICTEGRAVIR SODIUM\EMTRICITABINE\TENOFOVIR ALAFENAMIDE FUMARATE
     Indication: HIV infection
     Dosage: 1 DF, 1D
     Dates: start: 20190717
  34. NEXIUM [Concomitant]
     Active Substance: ESOMEPRAZOLE MAGNESIUM
     Indication: Prophylaxis
     Dosage: UNK
     Dates: start: 20190626, end: 20191009
  35. NEXIUM [Concomitant]
     Active Substance: ESOMEPRAZOLE MAGNESIUM
     Dosage: UNK
     Dates: start: 20210210, end: 20210309
  36. LYRICA [Concomitant]
     Active Substance: PREGABALIN
     Indication: Prophylaxis
     Dosage: UNK
     Dates: start: 20200401, end: 20200830
  37. ESFLURBIPROFEN\HERBALS [Concomitant]
     Active Substance: ESFLURBIPROFEN\HERBALS
     Indication: Prophylaxis
     Dosage: UNK
     Dates: start: 20200710, end: 20201006
  38. DENOSUMAB [Concomitant]
     Active Substance: DENOSUMAB
     Indication: Prophylaxis
     Dosage: UNK
     Dates: start: 20201111, end: 20221110
  39. ZOLPIDEM TARTRATE [Concomitant]
     Active Substance: ZOLPIDEM TARTRATE
     Indication: Prophylaxis
     Dosage: UNK
     Dates: start: 20201202, end: 202104
  40. KETOCONAZOLE [Concomitant]
     Active Substance: KETOCONAZOLE
     Dosage: UNK
     Dates: start: 20210210
  41. FLUORESCITE [Concomitant]
     Active Substance: FLUORESCEIN SODIUM
     Dosage: UNK
     Dates: start: 20200730, end: 20200730
  42. OPHTHAGREEN [Concomitant]
     Dosage: UNK
     Dates: start: 20200730, end: 20200730
  43. SOLDEM 3AG [Concomitant]
     Indication: Fluid replacement
     Dosage: UNK
     Dates: start: 20220419, end: 20220816
  44. HEPARIN SODIUM [Concomitant]
     Active Substance: HEPARIN SODIUM
     Indication: Prophylaxis
     Dosage: UNK
     Dates: start: 20220419, end: 20220816
  45. HEPARINOID [Concomitant]
     Indication: Prophylaxis
     Dosage: UNK
     Dates: start: 20220816, end: 20220830
  46. SHINGRIX [Concomitant]
     Active Substance: RECOMBINANT VARICELLA ZOSTER VIRUS (VZV) GLYCOPROTEIN E
     Indication: Prophylaxis
     Dosage: .5 ML
  47. PEGFILGRASTIM [Concomitant]
     Active Substance: PEGFILGRASTIM
     Indication: Prophylaxis
     Dosage: 3.6 MG
     Dates: start: 20220609, end: 20220609
  48. DEXTROSE\SODIUM CHLORIDE\SODIUM LACTATE [Concomitant]
     Active Substance: DEXTROSE\SODIUM CHLORIDE\SODIUM LACTATE
     Indication: Fluid replacement
     Dosage: UNK
     Dates: start: 20220621, end: 20220622
  49. DEXTROSE [Concomitant]
     Active Substance: DEXTROSE\DEXTROSE MONOHYDRATE
     Indication: Blood glucose decreased
     Dosage: UNK
     Dates: start: 20220621, end: 20220622
  50. CYANOCOBALAMIN\PYRIDOXINE HYDROCHLORIDE\THIAMINE [Concomitant]
     Active Substance: CYANOCOBALAMIN\PYRIDOXINE HYDROCHLORIDE\THIAMINE
     Indication: Vitamin supplementation
     Dosage: UNK
     Dates: start: 20220621, end: 20220622
  51. SOLYUGEN G [Concomitant]
     Indication: Fluid replacement
     Dosage: UNK
     Dates: start: 20220621, end: 20220622
  52. SODIUM CHLORIDE [Concomitant]
     Active Substance: SODIUM CHLORIDE
     Indication: Medication dilution
     Dosage: UNK
     Dates: start: 20220622, end: 20220629
  53. SODIUM CHLORIDE [Concomitant]
     Active Substance: SODIUM CHLORIDE
     Indication: Infusion
     Dosage: UNK
     Dates: start: 20220420, end: 20220428
  54. Azunol [Concomitant]
     Indication: Skin disorder prophylaxis
     Dosage: UNK
     Dates: start: 20220518
  55. Azunol [Concomitant]
     Dosage: UNK
     Dates: start: 20220425
  56. SENNOSIDES [Concomitant]
     Active Substance: SENNOSIDES
     Indication: Prophylaxis
     Dosage: UNK
     Dates: start: 20220425, end: 20220429
  57. SODIUM PICOSULFATE [Concomitant]
     Active Substance: SODIUM PICOSULFATE
     Indication: Prophylaxis
     Dosage: UNK
     Dates: start: 20220425, end: 2022
  58. PREDONINE [Concomitant]
     Active Substance: PREDNISOLONE
     Indication: Prophylaxis
     Dosage: UNK
     Dates: start: 20220425, end: 20220815
  59. APREPITANT [Concomitant]
     Active Substance: APREPITANT
     Indication: Prophylaxis
     Dosage: UNK
     Dates: start: 20220425, end: 20220816
  60. APREPITANT [Concomitant]
     Active Substance: APREPITANT
     Dosage: UNK
     Dates: start: 20220426, end: 20220817
  61. VALACYCLOVIR HYDROCHLORIDE [Concomitant]
     Active Substance: VALACYCLOVIR HYDROCHLORIDE
     Indication: Prophylaxis
     Dosage: UNK
     Dates: start: 20220425, end: 20221012
  62. CEFEPIME HYDROCHLORIDE [Concomitant]
     Active Substance: CEFEPIME HYDROCHLORIDE
     Indication: Prophylaxis
     Dosage: UNK
     Dates: start: 20220501, end: 20220714
  63. ATOVAQUONE [Concomitant]
     Active Substance: ATOVAQUONE
     Indication: Prophylaxis
     Dosage: UNK
     Dates: start: 20220502, end: 20220625
  64. FILGRASTIM [Concomitant]
     Active Substance: FILGRASTIM
     Indication: Prophylaxis
     Dosage: UNK
     Dates: start: 20220505, end: 20220829
  65. FILGRASTIM [Concomitant]
     Active Substance: FILGRASTIM
     Indication: Lymphoma
  66. BROTIZOLAM [Concomitant]
     Active Substance: BROTIZOLAM
     Indication: Prophylaxis
     Dosage: UNK
     Dates: start: 20220520
  67. MOSAPRIDE [Concomitant]
     Active Substance: MOSAPRIDE
     Indication: Prophylaxis
     Dosage: UNK
     Dates: start: 20220525, end: 20221012
  68. SOLDEM 3A [Concomitant]
     Active Substance: CARBOHYDRATES\POTASSIUM CHLORIDE\SODIUM CHLORIDE\SODIUM LACTATE
     Indication: Medication dilution
     Dosage: UNK
     Dates: start: 20220426, end: 20220816
  69. SOLDEM 3A [Concomitant]
     Active Substance: CARBOHYDRATES\POTASSIUM CHLORIDE\SODIUM CHLORIDE\SODIUM LACTATE
     Indication: Fluid replacement
  70. LEVOFLOXACIN [Concomitant]
     Active Substance: LEVOFLOXACIN
     Indication: Prophylaxis
     Dosage: UNK
     Dates: start: 20220425, end: 20221010
  71. LANSOPRAZOLE [Concomitant]
     Active Substance: LANSOPRAZOLE
     Indication: Prophylaxis
     Dosage: UNK
     Dates: start: 20220425, end: 20221012
  72. ALFACALCIDOL [Concomitant]
     Active Substance: ALFACALCIDOL
     Indication: Prophylaxis
     Dosage: UNK
     Dates: start: 20220425, end: 20221012
  73. CALCIUM ASPARTATE [Concomitant]
     Active Substance: CALCIUM ASPARTATE
     Indication: Electrolyte substitution therapy
     Dosage: UNK
     Dates: start: 20220425, end: 20221012
  74. TRAZODONE HYDROCHLORIDE [Concomitant]
     Active Substance: TRAZODONE HYDROCHLORIDE
     Indication: Prophylaxis
     Dosage: UNK
     Dates: start: 20220425, end: 20221012
  75. FEBUXOSTAT [Concomitant]
     Active Substance: FEBUXOSTAT
     Indication: Prophylaxis
     Dosage: UNK
     Dates: start: 20220425, end: 20221012

REACTIONS (9)
  - Oropharyngeal candidiasis [Recovered/Resolved]
  - Oesophageal candidiasis [Recovered/Resolved]
  - Deafness traumatic [Not Recovered/Not Resolved]
  - Mycobacterium avium complex infection [Recovering/Resolving]
  - Osteomyelitis [Recovered/Resolved]
  - Pain in extremity [Recovered/Resolved]
  - Pancytopenia [Recovered/Resolved]
  - Seasonal allergy [Not Recovered/Not Resolved]
  - Osteonecrosis [Recovering/Resolving]

NARRATIVE: CASE EVENT DATE: 20151216
